FAERS Safety Report 12646889 (Version 1)
Quarter: 2016Q3

REPORT INFORMATION
  Report Type: Spontaneous
  Country: GB (occurrence: GB)
  Receive Date: 20160812
  Receipt Date: 20160812
  Transmission Date: 20161109
  Serious: Yes (Hospitalization)
  Sender: FDA-Public Use
  Company Number: GB-ACCORD-043090

PATIENT
  Age: 58 Year
  Sex: Male

DRUGS (2)
  1. METHOTREXATE. [Suspect]
     Active Substance: METHOTREXATE
     Indication: CENTRAL NERVOUS SYSTEM LYMPHOMA
     Dosage: HIGH DOSE
     Dates: start: 20160704, end: 20160704
  2. PIPERACILLIN/TAZOBACTAM [Interacting]
     Active Substance: PIPERACILLIN SODIUM\TAZOBACTAM SODIUM
     Indication: SEPSIS
     Dosage: HIGH DOSE
     Dates: start: 20160707, end: 20160711

REACTIONS (3)
  - Drug level increased [Recovering/Resolving]
  - Off label use [Unknown]
  - Drug interaction [Unknown]

NARRATIVE: CASE EVENT DATE: 20160708
